FAERS Safety Report 9566840 (Version 1)
Quarter: 2013Q3

REPORT INFORMATION
  Report Type: Spontaneous
  Country: US (occurrence: US)
  Receive Date: 20130930
  Receipt Date: 20130930
  Transmission Date: 20140515
  Serious: No
  Sender: FDA-Public Use
  Company Number: US-AMGEN-USASP2012060302

PATIENT
  Age: 49 Year
  Sex: Female
  Weight: 74.83 kg

DRUGS (9)
  1. ENBREL [Suspect]
     Indication: PRODUCT USED FOR UNKNOWN INDICATION
     Dosage: 50 MG, QWK
     Route: 058
     Dates: start: 2002
  2. LISINOPRIL [Concomitant]
     Dosage: 10 MG, UNK
  3. WELLBUTRIN [Concomitant]
     Dosage: 100 MG, UNK
  4. ASPIRIN [Concomitant]
     Dosage: 81 MG, UNK
  5. PROBIOTIC                          /06395501/ [Concomitant]
     Dosage: UNK
  6. PREVACID [Concomitant]
     Dosage: 30 MG, UNK
  7. ZYRTEC-D [Concomitant]
     Dosage: 5-120MG
  8. VIVELLE-DOT [Concomitant]
     Dosage: 0.05 MG, UNK
  9. PROGESTERONE [Concomitant]
     Dosage: 200 MG, UNK

REACTIONS (2)
  - Therapeutic response decreased [Unknown]
  - Injection site pain [Unknown]
